FAERS Safety Report 15876497 (Version 1)
Quarter: 2019Q1

REPORT INFORMATION
  Report Type: Spontaneous
  Country: KR (occurrence: KR)
  Receive Date: 20190126
  Receipt Date: 20190126
  Transmission Date: 20190417
  Serious: Yes (Other)
  Sender: FDA-Public Use
  Company Number: KR-JNJFOC-20190130689

PATIENT
  Sex: Male

DRUGS (2)
  1. ROGAINE [Suspect]
     Active Substance: MINOXIDIL
     Indication: ALOPECIA AREATA
     Dosage: USED THE PRODUCT FOR NEARLY 8 YEARS,????STOPPED USING THE PRODUCT FOR ABOUT 20 DAYS
     Route: 061
  2. ROGAINE [Suspect]
     Active Substance: MINOXIDIL
     Indication: ANDROGENETIC ALOPECIA
     Dosage: USED THE PRODUCT FOR NEARLY 8 YEARS,????STOPPED USING THE PRODUCT FOR ABOUT 20 DAYS
     Route: 061

REACTIONS (4)
  - Alopecia [Unknown]
  - Product use in unapproved indication [Unknown]
  - Product administered at inappropriate site [Unknown]
  - Pathologic myopia [Unknown]
